FAERS Safety Report 19649873 (Version 1)
Quarter: 2021Q3

REPORT INFORMATION
  Report Type: Spontaneous
  Country: US (occurrence: US)
  Receive Date: 20210802
  Receipt Date: 20210802
  Transmission Date: 20211014
  Serious: Yes (Death)
  Sender: FDA-Public Use
  Company Number: None

PATIENT
  Age: 64 Year
  Sex: Male
  Weight: 67.5 kg

DRUGS (4)
  1. LEVETIRACETAM 1000MG [Concomitant]
     Active Substance: LEVETIRACETAM
  2. TEMOZOLOMIDE. [Suspect]
     Active Substance: TEMOZOLOMIDE
     Indication: BRAIN NEOPLASM MALIGNANT
     Dosage: ?          OTHER FREQUENCY:QDX5DAYS Q28DAYS;?
     Route: 048
     Dates: start: 20201223, end: 20210719
  3. ONDANSETRON 4MG [Concomitant]
     Active Substance: ONDANSETRON
  4. LOSARTAN 100MG [Concomitant]
     Active Substance: LOSARTAN

REACTIONS (1)
  - Death [None]

NARRATIVE: CASE EVENT DATE: 20210719
